FAERS Safety Report 6871121-9 (Version None)
Quarter: 2010Q3

REPORT INFORMATION
  Report Type: 
  Country: None (occurrence: None)
  Receive Date: 20100723
  Receipt Date: 20100708
  Transmission Date: 20110219
  Serious: Yes (Other)
  Sender: FDA-Public Use
  Company Number: GB-MYLANLABS-2010S1012124

PATIENT
  Age: 27 Year
  Sex: Male

DRUGS (2)
  1. SUMATRIPTAN [Suspect]
     Indication: MIGRAINE
     Route: 048
     Dates: start: 20100608, end: 20100608
  2. PARACETAMOL [Concomitant]
     Indication: MIGRAINE
     Route: 048

REACTIONS (4)
  - DYSPHAGIA [None]
  - NASAL DISCOMFORT [None]
  - NAUSEA [None]
  - PHARYNGEAL OEDEMA [None]
